FAERS Safety Report 6848278-9 (Version None)
Quarter: 2010Q3

REPORT INFORMATION
  Report Type: 
  Country: None (occurrence: None)
  Receive Date: 20100716
  Receipt Date: 20100707
  Transmission Date: 20110219
  Serious: Yes (Hospitalization)
  Sender: FDA-Public Use
  Company Number: US-ROCHE-698346

PATIENT
  Sex: Female
  Weight: 72.4 kg

DRUGS (20)
  1. BEVACIZUMAB [Suspect]
     Route: 042
     Dates: start: 20090904, end: 20100224
  2. GEMCITABINE HYDROCHLORIDE [Suspect]
     Dosage: FORM: VIAL.
     Route: 042
     Dates: start: 20090904, end: 20100315
  3. METOPROLOL [Concomitant]
  4. DIOVAN [Concomitant]
     Dates: end: 20100329
  5. HYDROCHLOROTHIAZIDE [Concomitant]
     Dates: end: 20100319
  6. AMLODIPINE [Concomitant]
     Dates: end: 20100329
  7. SYNTHROID [Concomitant]
  8. MAGNESIUM OXIDE [Concomitant]
     Dates: end: 20100329
  9. AMARYL [Concomitant]
     Dates: end: 20100329
  10. LIPITOR [Concomitant]
  11. ACTOS [Concomitant]
     Dates: end: 20100329
  12. JANUVIA [Concomitant]
     Dates: end: 20100329
  13. GLUCOPHAGE [Concomitant]
     Dates: end: 20100329
  14. FISH OIL [Concomitant]
  15. HYDROCODONE [Concomitant]
  16. IMODIUM [Concomitant]
  17. COMPAZINE [Concomitant]
  18. FIBERCON [Concomitant]
     Dates: end: 20100329
  19. TYLENOL [Concomitant]
  20. ASPIRIN [Concomitant]

REACTIONS (1)
  - RENAL FAILURE ACUTE [None]
